FAERS Safety Report 14197815 (Version 1)
Quarter: 2017Q4

REPORT INFORMATION
  Report Type: Report from Study
  Country: None (occurrence: BR)
  Receive Date: 20171117
  Receipt Date: 20171117
  Transmission Date: 20180321
  Serious: Yes (Other)
  Sender: FDA-Public Use
  Company Number: BR-ABBVIE-17K-020-2160960-00

PATIENT
  Sex: Female
  Weight: 65 kg

DRUGS (7)
  1. VITAMIN D [Concomitant]
     Active Substance: CHOLECALCIFEROL
     Indication: VITAMIN D DEFICIENCY
  2. TECNOMET [Concomitant]
     Active Substance: METHOTREXATE
     Indication: PAIN
  3. FOLIC ACID. [Concomitant]
     Active Substance: FOLIC ACID
     Indication: PAIN
  4. CALCIUM [Concomitant]
     Active Substance: CALCIUM
     Indication: PAIN
  5. CYCLOBENZAPRINE. [Concomitant]
     Active Substance: CYCLOBENZAPRINE
     Indication: PAIN
  6. HUMIRA [Suspect]
     Active Substance: ADALIMUMAB
     Indication: RHEUMATOID ARTHRITIS
     Route: 058
     Dates: start: 20161101
  7. DIPYRONE [Concomitant]
     Active Substance: DIPYRONE
     Indication: PAIN

REACTIONS (6)
  - Gait disturbance [Unknown]
  - Arthralgia [Not Recovered/Not Resolved]
  - Joint swelling [Not Recovered/Not Resolved]
  - Vitamin D deficiency [Not Recovered/Not Resolved]
  - Finger deformity [Not Recovered/Not Resolved]
  - Joint range of motion decreased [Unknown]

NARRATIVE: CASE EVENT DATE: 2017
